FAERS Safety Report 6251760-9 (Version None)
Quarter: 2009Q2

REPORT INFORMATION
  Report Type: 
  Country: None (occurrence: None)
  Receive Date: 20090630
  Receipt Date: 20090623
  Transmission Date: 20091009
  Serious: Yes (Hospitalization)
  Sender: FDA-Public Use
  Company Number: PHEH2009US06594

PATIENT
  Sex: Male

DRUGS (1)
  1. GLEEVEC [Suspect]
     Indication: CHRONIC MYELOID LEUKAEMIA
     Dosage: 400 MG, QD
     Dates: start: 20090213

REACTIONS (6)
  - CANDIDIASIS [None]
  - DERMATITIS [None]
  - DIARRHOEA [None]
  - FLUSHING [None]
  - INTRACRANIAL HYPOTENSION [None]
  - RASH PUSTULAR [None]
